FAERS Safety Report 16055719 (Version 1)
Quarter: 2019Q1

REPORT INFORMATION
  Report Type: Spontaneous
  Country: US (occurrence: US)
  Receive Date: 20190208
  Receipt Date: 20190208
  Transmission Date: 20190418
  Serious: No
  Sender: FDA-Public Use
  Company Number: None

PATIENT
  Age: 41 Year
  Sex: Female

DRUGS (1)
  1. ORENCIA [Suspect]
     Active Substance: ABATACEPT
     Dates: start: 201804, end: 201812

REACTIONS (4)
  - Epistaxis [None]
  - Upper respiratory tract infection [None]
  - Blindness unilateral [None]
  - Migraine [None]

NARRATIVE: CASE EVENT DATE: 20181203
